FAERS Safety Report 4313369-3 (Version None)
Quarter: 2004Q1

REPORT INFORMATION
  Report Type: 
  Country: None (occurrence: None)
  Receive Date: 20040304
  Receipt Date: 20040216
  Transmission Date: 20041129
  Serious: Yes (Other)
  Sender: FDA-Public Use
  Company Number: US_991029382

PATIENT
  Age: 58 Year
  Sex: Female
  Weight: 77 kg

DRUGS (5)
  1. HUMATROPE [Suspect]
     Indication: GROWTH HORMONE DEFICIENCY
     Dosage: 16 U/DAY
     Dates: start: 19990413
  2. DARVOCET-N 100 [Suspect]
     Indication: MYALGIA
     Dates: start: 19990901
  3. LEVOXYL [Concomitant]
  4. CYTOMEL [Concomitant]
  5. HYDROCORTISONE [Concomitant]

REACTIONS (15)
  - ABDOMINAL MASS [None]
  - ASTHENIA [None]
  - BLOOD TRIGLYCERIDES INCREASED [None]
  - CONTUSION [None]
  - DIZZINESS [None]
  - FATIGUE [None]
  - HYPERGLYCAEMIA [None]
  - HYPERSOMNIA [None]
  - INFECTION [None]
  - MYALGIA [None]
  - ORAL CANDIDIASIS [None]
  - PANCREATIC DISORDER [None]
  - TOOTH EXTRACTION [None]
  - VISUAL DISTURBANCE [None]
  - WEIGHT DECREASED [None]
